FAERS Safety Report 19300954 (Version 1)
Quarter: 2021Q2

REPORT INFORMATION
  Report Type: Spontaneous
  Country: US (occurrence: US)
  Receive Date: 20210525
  Receipt Date: 20210525
  Transmission Date: 20210717
  Serious: Yes (Death)
  Sender: FDA-Public Use
  Company Number: None

PATIENT
  Age: 53 Year
  Sex: Male
  Weight: 80.6 kg

DRUGS (1)
  1. KYMRIAH [Suspect]
     Active Substance: TISAGENLECLEUCEL
     Indication: DIFFUSE LARGE B-CELL LYMPHOMA
     Route: 042
     Dates: start: 20210510, end: 20210510

REACTIONS (7)
  - Hypoxia [None]
  - Cerebral mass effect [None]
  - Brain herniation [None]
  - Hypotension [None]
  - Gastrointestinal haemorrhage [None]
  - Transfusion [None]
  - Cerebral infarction [None]

NARRATIVE: CASE EVENT DATE: 20210521
